FAERS Safety Report 8438580-1 (Version None)
Quarter: 2012Q2

REPORT INFORMATION
  Report Type: 
  Country: None (occurrence: None)
  Receive Date: 20120615
  Receipt Date: 20120608
  Transmission Date: 20120825
  Serious: No
  Sender: FDA-Public Use
  Company Number: US-PFIZER INC-2012105951

PATIENT
  Sex: Male
  Weight: 81.633 kg

DRUGS (3)
  1. BACTRIM DS [Concomitant]
     Dosage: 800MG-160MG, 2X/DAY
     Route: 048
  2. TOVIAZ [Suspect]
     Indication: HYPERTONIC BLADDER
     Dosage: 8 MG, ONCE DAILY
     Route: 048
     Dates: start: 20120427
  3. LEVEMIR [Concomitant]
     Indication: DIABETES MELLITUS
     Dosage: 60 IU, DAILY

REACTIONS (2)
  - CONSTIPATION [None]
  - DRY MOUTH [None]
